FAERS Safety Report 10476088 (Version 2)
Quarter: 2014Q4

REPORT INFORMATION
  Report Type: Spontaneous
  Country: US (occurrence: US)
  Receive Date: 20140925
  Receipt Date: 20141202
  Transmission Date: 20150528
  Serious: Yes (Death)
  Sender: FDA-Public Use
  Company Number: US-BAYER-2014-140868

PATIENT
  Sex: Male

DRUGS (1)
  1. CAMPHO-PHENIQUE ANTISEPTIC LIQUID [Suspect]
     Active Substance: CAMPHORATED PHENOL
     Dosage: UNK

REACTIONS (2)
  - Death [Fatal]
  - Medication error [None]

NARRATIVE: CASE EVENT DATE: 1961
